FAERS Safety Report 20732915 (Version 2)
Quarter: 2022Q2

REPORT INFORMATION
  Report Type: Spontaneous
  Country: JP (occurrence: JP)
  Receive Date: 20220420
  Receipt Date: 20220603
  Transmission Date: 20220720
  Serious: Yes (Hospitalization, Other)
  Sender: FDA-Public Use
  Company Number: JP-NOVARTISPH-NVSJ2022JP088975

PATIENT
  Age: 78 Year
  Sex: Male

DRUGS (6)
  1. TAFINLAR [Suspect]
     Active Substance: DABRAFENIB MESYLATE
     Indication: Lung neoplasm malignant
     Dosage: 300 MG
     Route: 048
     Dates: start: 20220411, end: 20220416
  2. TAFINLAR [Suspect]
     Active Substance: DABRAFENIB MESYLATE
     Dosage: UNK
     Route: 048
     Dates: start: 20220427
  3. MEKINIST [Suspect]
     Active Substance: TRAMETINIB DIMETHYL SULFOXIDE
     Indication: Lung neoplasm malignant
     Dosage: 2 MG
     Route: 048
     Dates: start: 20220411, end: 20220416
  4. MEKINIST [Suspect]
     Active Substance: TRAMETINIB DIMETHYL SULFOXIDE
     Dosage: UNK
     Route: 065
     Dates: start: 20220427
  5. NAFTOPIDIL [Concomitant]
     Active Substance: NAFTOPIDIL
     Indication: Dysuria
     Dosage: UNK
     Route: 065
  6. VIBEGRON [Concomitant]
     Active Substance: VIBEGRON
     Indication: Dysuria
     Dosage: UNK
     Route: 065

REACTIONS (3)
  - Pneumonia bacterial [Recovered/Resolved]
  - Pyrexia [Unknown]
  - Headache [Unknown]

NARRATIVE: CASE EVENT DATE: 20220417
